FAERS Safety Report 5780914-0 (Version None)
Quarter: 2008Q2

REPORT INFORMATION
  Report Type: 
  Country: None (occurrence: None)
  Receive Date: 20080618
  Receipt Date: 20080610
  Transmission Date: 20081010
  Serious: Yes (Other)
  Sender: FDA-Public Use
  Company Number: 163-21880-08050104

PATIENT
  Age: 57 Year
  Sex: Female

DRUGS (3)
  1. REVLIMID [Suspect]
     Indication: MULTIPLE MYELOMA
     Dosage: 25 MG, DAILY X 21 DAYS, ORAL
     Route: 048
     Dates: start: 20080301
  2. ASPIRIN [Concomitant]
  3. CHEMOTHERAPY (CHEMOTHERAPEUTICS NOS) [Concomitant]

REACTIONS (3)
  - FATIGUE [None]
  - RASH PRURITIC [None]
  - RETINAL OEDEMA [None]
